FAERS Safety Report 10236940 (Version 1)
Quarter: 2014Q1

REPORT INFORMATION
  Report Type: Spontaneous
  Country: US (occurrence: None)
  Receive Date: 20140306
  Receipt Date: 20140306
  Transmission Date: 20141002
  Serious: Yes (Hospitalization, Other)
  Sender: FDA-Public Use
  Company Number: 163-21880-13054606

PATIENT
  Age: 61 Year
  Sex: Male
  Weight: 55.3 kg

DRUGS (15)
  1. REVLIMID (LENALIDOMIDE) (25 MILLIGRAM, CAPSULES) [Suspect]
     Indication: PLASMA CELL MYELOMA
     Dosage: 25 MG, 1 IN 1 D, PO  07/2012 - UNKNOWN THERAPY DATES
     Route: 048
     Dates: start: 201207
  2. GABAPENTIN (GABAPENTIN) [Concomitant]
  3. ONDANSETROB HCL (ONDANSETRON HYDROCHLORIDE) (TABLETS) [Concomitant]
  4. ACYCLOVIR (ACYCLOVIR) (TABLETS) [Concomitant]
  5. CHLORHEXIDRINE (CHLORHEXIDINE) [Concomitant]
  6. LISINOPRIL (LISINOPRIL) (TABLETS) [Concomitant]
  7. MULTIVITAMINS (MULTIVITAMINS) (TABLETS) [Concomitant]
  8. BACTRIM DS (BACTRIM) (TABLETS) [Concomitant]
  9. CYMBALTA [Concomitant]
  10. PANTOPRAZOLE (PANTOPRAZOLE) (TABLETS) [Concomitant]
  11. XANAX (ALPRAZOLAM) (TABLETS) [Concomitant]
  12. METHADONE HCL (METHADONE HYDROCHLORIDE) (TABLETS) [Concomitant]
  13. NASACORT (TRIAMCINOLONE ACETONIDE) (SPRAY) (NOT INHALATION) [Concomitant]
  14. ZOMETA (ZOLEDRONIC ACID) (INJECTION) [Concomitant]
  15. TRIAMCINOLONE (TRIAMCINOLONE) (SPRAY (NOT INHALATION)) [Concomitant]

REACTIONS (4)
  - Thrombosis [None]
  - Nasopharyngitis [None]
  - Pyrexia [None]
  - Dyspnoea [None]
